FAERS Safety Report 8936129 (Version 1)
Quarter: 2012Q4

REPORT INFORMATION
  Report Type: Spontaneous
  Country: US (occurrence: None)
  Receive Date: 20121128
  Receipt Date: 20121128
  Transmission Date: 20130627
  Serious: Yes (Hospitalization)
  Sender: FDA-Public Use
  Company Number: None

PATIENT
  Age: 56 Year
  Sex: Male
  Weight: 64.86 kg

DRUGS (2)
  1. VELCADE [Suspect]
     Indication: RENAL CELL CARCINOMA
     Dosage: 1.8 mg ; ; intravenous ; D1 and D8 9^ 21 days.
     Route: 042
     Dates: start: 20120905, end: 20121114
  2. BEVACIZUMAB [Suspect]
     Indication: RENAL CELL CARCINOMA
     Dosage: 15 mg; ; intravenous; D1 9^ 21 days.
     Route: 042
     Dates: start: 20120905, end: 20121107

REACTIONS (1)
  - Ear haemorrhage [None]
